FAERS Safety Report 4742621-2 (Version None)
Quarter: 2005Q3

REPORT INFORMATION
  Report Type: 
  Country: None (occurrence: None)
  Receive Date: 20050810
  Receipt Date: 20050616
  Transmission Date: 20060218
  Serious: Yes (Hospitalization)
  Sender: FDA-Public Use
  Company Number: 2005101660

PATIENT
  Sex: Female

DRUGS (1)
  1. VISINE EYE DROPS [Suspect]
     Dosage: OPHTHALMIC
     Route: 047

REACTIONS (3)
  - APPLICATION SITE REACTION [None]
  - DERMATITIS CONTACT [None]
  - EYELID OEDEMA [None]
